FAERS Safety Report 23126461 (Version 1)
Quarter: 2023Q4

REPORT INFORMATION
  Report Type: Other
  Country: IL (occurrence: None)
  Receive Date: 20231030
  Receipt Date: 20231030
  Transmission Date: 20240109
  Serious: Yes (Other)
  Sender: FDA-Public Use
  Company Number: IL-ROCHE-3445123

PATIENT
  Age: 69 Year
  Sex: Male

DRUGS (6)
  1. ALECENSA [Suspect]
     Active Substance: ALECTINIB HYDROCHLORIDE
     Indication: Non-small cell lung cancer
     Route: 048
     Dates: start: 20201027
  2. ATENOLOL [Concomitant]
     Active Substance: ATENOLOL
  3. ATACAND [Concomitant]
     Active Substance: CANDESARTAN CILEXETIL
  4. METFORMIN HYDROCHLORIDE\SITAGLIPTIN PHOSPHATE [Concomitant]
     Active Substance: METFORMIN HYDROCHLORIDE\SITAGLIPTIN PHOSPHATE
     Indication: Diabetes mellitus
  5. LIPOVAS (JAPAN) [Concomitant]
     Indication: Hyperlipidaemia
  6. ASPIRIN [Concomitant]
     Active Substance: ASPIRIN

REACTIONS (3)
  - Pulmonary oedema [Recovering/Resolving]
  - Ventricular fibrillation [Recovering/Resolving]
  - Cardiac failure [Recovering/Resolving]
